FAERS Safety Report 6805247-2 (Version None)
Quarter: 2010Q2

REPORT INFORMATION
  Report Type: 
  Country: None (occurrence: None)
  Receive Date: 20100628
  Receipt Date: 20070925
  Transmission Date: 20101027
  Serious: No
  Sender: FDA-Public Use
  Company Number: US-PFIZER INC-2007081059

PATIENT
  Sex: Male

DRUGS (1)
  1. GEODON [Suspect]
     Dosage: 40-60MG
     Dates: end: 20070901

REACTIONS (3)
  - CHILLS [None]
  - NAUSEA [None]
  - TREMOR [None]
